FAERS Safety Report 21891496 (Version 2)
Quarter: 2023Q2

REPORT INFORMATION
  Report Type: Spontaneous
  Country: US (occurrence: US)
  Receive Date: 20230120
  Receipt Date: 20230511
  Transmission Date: 20230722
  Serious: Yes (Other)
  Sender: FDA-Public Use
  Company Number: US-Blueprint Medicines Corporation-725

PATIENT
  Sex: Male

DRUGS (2)
  1. AYVAKIT [Suspect]
     Active Substance: AVAPRITINIB
     Indication: Systemic mastocytosis
     Route: 065
     Dates: start: 20220810
  2. AYVAKIT [Suspect]
     Active Substance: AVAPRITINIB
     Route: 065
     Dates: start: 20220810

REACTIONS (10)
  - Loss of consciousness [Unknown]
  - Skin haemorrhage [Unknown]
  - Dry skin [Unknown]
  - Erythema [Unknown]
  - Urticaria [Unknown]
  - Anxiety [Unknown]
  - Temperature intolerance [Unknown]
  - Adverse drug reaction [Unknown]
  - Dyspnoea [Unknown]
  - Memory impairment [Unknown]
